FAERS Safety Report 24702207 (Version 1)
Quarter: 2024Q4

REPORT INFORMATION
  Report Type: Report from Study
  Country: CA (occurrence: CA)
  Receive Date: 20241205
  Receipt Date: 20241205
  Transmission Date: 20250114
  Serious: Yes (Hospitalization)
  Sender: SK LIFE SCIENCE
  Company Number: CA-ENDO OPERATIONS LTD.-2024-050161

PATIENT

DRUGS (9)
  1. XCOPRI [Suspect]
     Active Substance: CENOBAMATE
     Indication: Partial seizures
     Dosage: 12.5 MILLIGRAM, DAILY
     Route: 048
     Dates: start: 20240831, end: 2024
  2. XCOPRI [Suspect]
     Active Substance: CENOBAMATE
     Indication: Adjuvant therapy
     Dosage: 25 MILLIGRAM, DAILY
     Route: 048
     Dates: start: 2024, end: 2024
  3. XCOPRI [Suspect]
     Active Substance: CENOBAMATE
     Dosage: 12.5 MILLIGRAM, DAILY
     Route: 048
     Dates: start: 2024, end: 2024
  4. XCOPRI [Suspect]
     Active Substance: CENOBAMATE
     Dosage: 25 MILLIGRAM, DAILY
     Route: 048
     Dates: start: 2024, end: 2024
  5. XCOPRI [Suspect]
     Active Substance: CENOBAMATE
     Dosage: 50 MILLIGRAM, DAILY
     Route: 048
     Dates: start: 2024
  6. APTIOM [Concomitant]
     Active Substance: ESLICARBAZEPINE ACETATE
     Indication: Product used for unknown indication
     Dosage: 800 MILLIGRAM, QHS
     Route: 065
  7. APTIOM [Concomitant]
     Active Substance: ESLICARBAZEPINE ACETATE
     Dosage: WHEN ON CENOBAMATE 50 MG, REDUCE APTIOM TO 600 MG HS, AFTER 2 WEEKS 400 MG HS, AFTER 2 WEEKS 200 MG
     Route: 065
  8. LAMOTRIGINE [Concomitant]
     Active Substance: LAMOTRIGINE
     Indication: Product used for unknown indication
     Dosage: 150 MG AM, 200 MG AT 6PM
     Route: 065
     Dates: end: 2024
  9. RUFINAMIDE [Concomitant]
     Active Substance: RUFINAMIDE
     Indication: Product used for unknown indication
     Dosage: 1200 MILLIGRAM, BID
     Route: 065

REACTIONS (2)
  - Hospitalisation [Unknown]
  - Adverse event [Unknown]

NARRATIVE: CASE EVENT DATE: 20240101
